FAERS Safety Report 13281859 (Version 1)
Quarter: 2017Q1

REPORT INFORMATION
  Report Type: Spontaneous
  Country: US (occurrence: US)
  Receive Date: 20170301
  Receipt Date: 20170301
  Transmission Date: 20170428
  Serious: Yes (Hospitalization)
  Sender: FDA-Public Use
  Company Number: None

PATIENT

DRUGS (1)
  1. ELIQUIS [Suspect]
     Active Substance: APIXABAN

REACTIONS (4)
  - Pain in extremity [None]
  - Dizziness [None]
  - Dyspnoea [None]
  - Joint crepitation [None]

NARRATIVE: CASE EVENT DATE: 20161107
